FAERS Safety Report 4757421-7 (Version None)
Quarter: 2005Q3

REPORT INFORMATION
  Report Type: 
  Country: None (occurrence: None)
  Receive Date: 20050829
  Receipt Date: 20050818
  Transmission Date: 20060218
  Serious: Yes (Other)
  Sender: FDA-Public Use
  Company Number: 2005094329

PATIENT
  Age: 86 Year
  Sex: Male

DRUGS (1)
  1. CELEBREX [Suspect]
     Indication: ILL-DEFINED DISORDER
     Dosage: 400 MG (200 MG,2 IN 1 D) ,ORAL
     Route: 048

REACTIONS (4)
  - ARTHROPOD BITE [None]
  - DYSPEPSIA [None]
  - GENITAL INFECTION [None]
  - PHARMACEUTICAL PRODUCT COMPLAINT [None]
